FAERS Safety Report 8186264-X (Version None)
Quarter: 2012Q1

REPORT INFORMATION
  Report Type: 
  Country: None (occurrence: None)
  Receive Date: 20120301
  Receipt Date: 20120220
  Transmission Date: 20120608
  Serious: Yes (Death, Hospitalization, Other)
  Sender: FDA-Public Use
  Company Number: 2012P1007821

PATIENT
  Age: 10 Year
  Sex: Female

DRUGS (1)
  1. PHENOBARBITAL TAB [Suspect]
     Indication: CONVULSION
     Dosage: PO
     Route: 048

REACTIONS (16)
  - TOXICITY TO VARIOUS AGENTS [None]
  - CONJUNCTIVAL HYPERAEMIA [None]
  - ACUTE RESPIRATORY DISTRESS SYNDROME [None]
  - HAEMATURIA [None]
  - ACINETOBACTER TEST POSITIVE [None]
  - PYURIA [None]
  - PNEUMOTHORAX [None]
  - ACUTE HEPATIC FAILURE [None]
  - PNEUMOMEDIASTINUM [None]
  - GENERAL PHYSICAL HEALTH DETERIORATION [None]
  - PNEUMONITIS [None]
  - SUBCUTANEOUS EMPHYSEMA [None]
  - SEPSIS [None]
  - HEPATITIS [None]
  - DRUG RASH WITH EOSINOPHILIA AND SYSTEMIC SYMPTOMS [None]
  - PERICARDIAL EFFUSION [None]
